FAERS Safety Report 6858618-2 (Version None)
Quarter: 2010Q3

REPORT INFORMATION
  Report Type: 
  Country: None (occurrence: None)
  Receive Date: 20100719
  Receipt Date: 20080402
  Transmission Date: 20110219
  Serious: No
  Sender: FDA-Public Use
  Company Number: US-PFIZER INC-2008012531

PATIENT
  Sex: Female
  Weight: 61.363 kg

DRUGS (3)
  1. CHANTIX [Suspect]
     Indication: SMOKING CESSATION THERAPY
     Route: 048
     Dates: start: 20071211, end: 20080101
  2. PAXIL [Concomitant]
  3. SYNTHROID [Concomitant]

REACTIONS (5)
  - ABDOMINAL DISCOMFORT [None]
  - FLATULENCE [None]
  - NAUSEA [None]
  - UNEVALUABLE EVENT [None]
  - VOMITING [None]
